FAERS Safety Report 11494723 (Version 1)
Quarter: 2015Q3

REPORT INFORMATION
  Report Type: Spontaneous
  Country: DE (occurrence: DE)
  Receive Date: 20150911
  Receipt Date: 20150911
  Transmission Date: 20151125
  Serious: Yes (Other)
  Sender: FDA-Public Use
  Company Number: DE-ROCHE-1632662

PATIENT
  Sex: Female

DRUGS (1)
  1. XELODA [Suspect]
     Active Substance: CAPECITABINE
     Indication: PRODUCT USED FOR UNKNOWN INDICATION
     Route: 065
     Dates: start: 201410, end: 201504

REACTIONS (4)
  - Skin reaction [Recovered/Resolved]
  - Coma [Recovered/Resolved]
  - Cardiovascular disorder [Not Recovered/Not Resolved]
  - Pain in extremity [Recovered/Resolved]
